FAERS Safety Report 10685370 (Version 3)
Quarter: 2015Q2

REPORT INFORMATION
  Report Type: Spontaneous
  Country: US (occurrence: US)
  Receive Date: 20141231
  Receipt Date: 20150519
  Transmission Date: 20150821
  Serious: No
  Sender: FDA-Public Use
  Company Number: US-GLAXOSMITHKLINE-US2014GSK044156

PATIENT
  Sex: Female
  Weight: 83.9 kg

DRUGS (8)
  1. VOTRIENT [Suspect]
     Active Substance: PAZOPANIB HYDROCHLORIDE
     Dosage: 600 MG, QD
     Dates: start: 201310
  2. VOTRIENT [Suspect]
     Active Substance: PAZOPANIB HYDROCHLORIDE
     Indication: RENAL CANCER
     Dosage: 600 MG, QD
     Dates: start: 201402
  3. LORAZEPAM. [Concomitant]
     Active Substance: LORAZEPAM
  4. LEVOTHYROXINE [Concomitant]
     Active Substance: LEVOTHYROXINE
  5. ATORVASTATIN [Concomitant]
     Active Substance: ATORVASTATIN
  6. CORVITE [Concomitant]
  7. VOTRIENT [Suspect]
     Active Substance: PAZOPANIB HYDROCHLORIDE
     Dosage: 600 MG, QD
     Route: 048
     Dates: start: 20140402
  8. NORVASC [Concomitant]
     Active Substance: AMLODIPINE BESYLATE

REACTIONS (6)
  - Hair colour changes [Unknown]
  - Alopecia [Unknown]
  - Neoplasm progression [Unknown]
  - Fatigue [Unknown]
  - Constipation [Unknown]
  - Blood pressure increased [Unknown]
